FAERS Safety Report 12936594 (Version 2)
Quarter: 2016Q4

REPORT INFORMATION
  Report Type: Spontaneous
  Country: JP (occurrence: JP)
  Receive Date: 20161114
  Receipt Date: 20161122
  Transmission Date: 20170207
  Serious: Yes (Other)
  Sender: FDA-Public Use
  Company Number: JP-PFIZER INC-2016521801

PATIENT
  Age: 73 Year
  Sex: Male

DRUGS (3)
  1. CAPECITABINE. [Suspect]
     Active Substance: CAPECITABINE
     Indication: COLON CANCER
     Dosage: 1000 MG/M2, 2X/DAY (2 WEEK ADMINISTRATION) WITH 1 CYCLE LASTING 3 WEEKS
  2. OXALIPLATIN. [Suspect]
     Active Substance: OXALIPLATIN
     Indication: COLON CANCER
     Dosage: 130 MG/M2, UNK (AT 3 WEEKS INTERVALS)
     Route: 042
  3. BEVACIZUMAB [Suspect]
     Active Substance: BEVACIZUMAB
     Indication: COLON CANCER
     Dosage: 7.5 MG/KG, UNK (AT 3 WEEKS INTERVALS)
     Route: 042

REACTIONS (2)
  - Portal vein thrombosis [Recovered/Resolved]
  - Ascites [Recovered/Resolved]
